FAERS Safety Report 4882512-X (Version None)
Quarter: 2006Q1

REPORT INFORMATION
  Report Type: 
  Country: None (occurrence: None)
  Receive Date: 20060113
  Receipt Date: 20060104
  Transmission Date: 20060701
  Serious: Yes (Other)
  Sender: FDA-Public Use
  Company Number: 2006002874

PATIENT
  Age: 4 Year
  Sex: Female

DRUGS (3)
  1. DILANTIN KAPSEAL [Suspect]
     Indication: CONVULSION
     Dosage: 500 MG (500 MG, 1 IN 1 D), ORAL
     Route: 048
     Dates: start: 19600101
  2. ALL OTHER THERAPEUTIC PRODUCTS (ALL OTHER THERAPEUTIC PRODUCTS) [Suspect]
     Indication: SINUS DISORDER
  3. TOPAMAX [Suspect]
     Indication: CONVULSION
     Dates: start: 20050101

REACTIONS (7)
  - CONVULSION [None]
  - DEPRESSION [None]
  - FEELING ABNORMAL [None]
  - GASTRIC BYPASS [None]
  - SINUS DISORDER [None]
  - WEIGHT INCREASED [None]
  - WEIGHT LOSS POOR [None]
